FAERS Safety Report 14355265 (Version 1)
Quarter: 2018Q1

REPORT INFORMATION
  Report Type: Spontaneous
  Country: US (occurrence: US)
  Receive Date: 20180104
  Receipt Date: 20180104
  Transmission Date: 20180509
  Serious: Yes (Other)
  Sender: FDA-Public Use
  Company Number: None

PATIENT
  Age: 18 Year
  Sex: Male
  Weight: 72 kg

DRUGS (4)
  1. VITAMIN D [Concomitant]
     Active Substance: CHOLECALCIFEROL
  2. MULTI VITAMIN [Concomitant]
     Active Substance: VITAMINS
  3. MESALAMINE DR 1.2 GM TABLET [Suspect]
     Active Substance: MESALAMINE
     Indication: CROHN^S DISEASE
     Dosage: ?          QUANTITY:1 TABLET(S);?
     Route: 048
     Dates: start: 20170823, end: 20170901
  4. LIALDA [Concomitant]
     Active Substance: MESALAMINE

REACTIONS (5)
  - Pain [None]
  - Product substitution issue [None]
  - Product odour abnormal [None]
  - Insurance issue [None]
  - Nausea [None]

NARRATIVE: CASE EVENT DATE: 20170823
